FAERS Safety Report 5837924-4 (Version None)
Quarter: 2008Q3

REPORT INFORMATION
  Report Type: 
  Country: None (occurrence: None)
  Receive Date: 20080808
  Receipt Date: 20080806
  Transmission Date: 20090109
  Serious: Yes (Hospitalization)
  Sender: FDA-Public Use
  Company Number: DK-BRISTOL-MYERS SQUIBB COMPANY-14291462

PATIENT
  Age: 34 Year
  Sex: Male

DRUGS (3)
  1. ETOPOSIDE [Suspect]
     Indication: GERM CELL CANCER
     Route: 042
  2. CISPLATIN [Suspect]
     Indication: GERM CELL CANCER
     Route: 042
  3. BLEOMYCIN SULFATE [Suspect]
     Indication: GERM CELL CANCER
     Route: 042

REACTIONS (2)
  - DEEP VEIN THROMBOSIS [None]
  - RENAL DISORDER [None]
